FAERS Safety Report 4400998-1 (Version None)
Quarter: 2004Q3

REPORT INFORMATION
  Report Type: 
  Country: None (occurrence: None)
  Receive Date: 20040907
  Receipt Date: 20030912
  Transmission Date: 20050211
  Serious: Yes (Disabling)
  Sender: FDA-Public Use
  Company Number: US-BRISTOL-MYERS SQUIBB COMPANY-12381547

PATIENT
  Age: 81 Year
  Sex: Male
  Weight: 74 kg

DRUGS (11)
  1. COUMADIN [Suspect]
     Indication: ATRIAL FIBRILLATION
     Route: 048
     Dates: start: 20030409, end: 20030810
  2. HYZAAR [Concomitant]
     Dosage: DOSE: 100/25 MG, 1 TABLET DAILY
     Route: 048
     Dates: start: 20030409
  3. COREG [Concomitant]
     Dates: start: 20030310
  4. PLAVIX [Concomitant]
     Route: 048
     Dates: start: 20021202, end: 20030810
  5. ASPIRIN [Concomitant]
     Route: 048
     Dates: start: 20021202, end: 20030810
  6. PEPCID [Concomitant]
     Route: 048
     Dates: start: 20021202
  7. VITAMIN [Concomitant]
     Route: 048
     Dates: start: 20021202
  8. PROSCAR [Concomitant]
     Route: 048
     Dates: start: 20021202
  9. ZOCOR [Concomitant]
     Route: 048
  10. VIOXX [Concomitant]
     Indication: PAIN
  11. ADALAT CC [Concomitant]
     Route: 048
     Dates: start: 20030730

REACTIONS (4)
  - ASTHENIA [None]
  - FATIGUE [None]
  - NECROSIS [None]
  - WEIGHT DECREASED [None]
